FAERS Safety Report 8518555-4 (Version None)
Quarter: 2012Q3

REPORT INFORMATION
  Report Type: 
  Country: None (occurrence: None)
  Receive Date: 20120718
  Receipt Date: 20120515
  Transmission Date: 20120928
  Serious: Yes (Death, Other)
  Sender: FDA-Public Use
  Company Number: US-BRISTOL-MYERS SQUIBB COMPANY-16595480

PATIENT
  Age: 6 Decade
  Sex: Male

DRUGS (5)
  1. COUMADIN [Suspect]
  2. CAPTOPRIL [Suspect]
  3. ASPIRIN [Suspect]
  4. PRADAXA [Suspect]
     Dosage: 300MG
     Route: 048
     Dates: end: 20120422
  5. PLAVIX [Suspect]
     Route: 048

REACTIONS (2)
  - ADVERSE EVENT [None]
  - GASTROINTESTINAL HAEMORRHAGE [None]
